FAERS Safety Report 26138365 (Version 1)
Quarter: 2025Q4

REPORT INFORMATION
  Report Type: Spontaneous
  Country: GB (occurrence: GB)
  Receive Date: 20251210
  Receipt Date: 20251210
  Transmission Date: 20260117
  Serious: Yes (Life-Threatening, Other)
  Sender: Kenvue
  Company Number: None

PATIENT
  Age: 65 Year
  Weight: 75 kg

DRUGS (1)
  1. CETIRIZINE HYDROCHLORIDE [Suspect]
     Active Substance: CETIRIZINE HYDROCHLORIDE
     Indication: Arthropod bite
     Dosage: 10 MILLIGRAM, SINGLE

REACTIONS (2)
  - Anaphylactic reaction [Recovered/Resolved]
  - Product use in unapproved indication [Unknown]
